FAERS Safety Report 12484789 (Version 1)
Quarter: 2016Q2

REPORT INFORMATION
  Report Type: Spontaneous
  Country: US (occurrence: US)
  Receive Date: 20160621
  Receipt Date: 20160621
  Transmission Date: 20160815
  Serious: Yes (Other)
  Sender: FDA-Public Use
  Company Number: US-ACTAVIS-2016-00154

PATIENT
  Age: 31 Year
  Sex: Female

DRUGS (1)
  1. BUPROPION HYDROCHLORIDE (ACTAVIS LABORATORIES FL) [Suspect]
     Active Substance: BUPROPION HYDROCHLORIDE
     Indication: MAJOR DEPRESSION
     Dosage: 450 MG, DAILY
     Route: 048
     Dates: start: 201506

REACTIONS (4)
  - Laceration [Unknown]
  - Tooth fracture [Unknown]
  - Fall [Recovered/Resolved]
  - Generalised tonic-clonic seizure [Recovered/Resolved]

NARRATIVE: CASE EVENT DATE: 20160101
